FAERS Safety Report 7938460-1 (Version None)
Quarter: 2011Q4

REPORT INFORMATION
  Report Type: 
  Country: None (occurrence: None)
  Receive Date: 20111123
  Receipt Date: 20111117
  Transmission Date: 20120403
  Serious: Yes (Other)
  Sender: FDA-Public Use
  Company Number: FR-GILEAD-2011-0046982

PATIENT
  Sex: Male

DRUGS (9)
  1. EFAVIRENZ/EMTRICITABINE/TENOFOVIR DISOPROXIL FUMARATE [Suspect]
     Indication: HIV INFECTION
     Dosage: 1 DF, QD
     Dates: start: 20100819, end: 20100923
  2. CRESTOR [Concomitant]
     Indication: HYPERLIPIDAEMIA
     Dosage: 5 MG, QD
     Dates: start: 20091203, end: 20100923
  3. VALACYCLOVIR HYDROCHLORIDE [Concomitant]
     Indication: GENITAL HERPES
     Dosage: 500 MG, QD
     Dates: start: 20100710, end: 20100923
  4. TRUVADA [Concomitant]
     Indication: HIV INFECTION
     Dosage: 1 DF, QD
     Dates: start: 20100923
  5. METEOSPASMYL                       /02143701/ [Concomitant]
     Indication: FLATULENCE
     Dosage: 2 DF, QD
     Dates: start: 20100624, end: 20100923
  6. PYOSTACINE [Concomitant]
     Indication: BRONCHITIS
  7. PYOSTACINE [Concomitant]
     Indication: SINUSITIS
     Dosage: 1000 MG, BID
     Dates: start: 20100915, end: 20100919
  8. MYCOSTER                           /00619301/ [Concomitant]
     Indication: SEBORRHOEIC DERMATITIS
     Dosage: 1 DF, UNK
     Dates: start: 19800101
  9. AVLOCARDYL                         /00030002/ [Concomitant]
     Indication: ANXIETY
     Dosage: 40 MG, QD
     Dates: start: 19900101

REACTIONS (2)
  - CELL DEATH [None]
  - HEPATITIS C [None]
